FAERS Safety Report 4515444-7 (Version None)
Quarter: 2005Q1

REPORT INFORMATION
  Report Type: 
  Country: None (occurrence: None)
  Receive Date: 20041029
  Receipt Date: 20040817
  Transmission Date: 20050727
  Serious: No
  Sender: FDA-Public Use
  Company Number: 200416209US

PATIENT
  Age: 58 Year
  Sex: Female

DRUGS (1)
  1. KETEK [Suspect]
     Indication: INFECTION
     Dosage: 800 MG QD PO
     Route: 048
     Dates: start: 20040817

REACTIONS (2)
  - DYSGEUSIA [None]
  - ERUCTATION [None]
